FAERS Safety Report 6072193-4 (Version None)
Quarter: 2009Q1

REPORT INFORMATION
  Report Type: 
  Country: None (occurrence: None)
  Receive Date: 20090206
  Receipt Date: 20090206
  Transmission Date: 20090719
  Serious: Yes (Other)
  Sender: FDA-Public Use
  Company Number: None

PATIENT
  Age: 46 Year
  Sex: Female
  Weight: 69.4003 kg

DRUGS (2)
  1. ABILIFY [Suspect]
     Indication: SCHIZOAFFECTIVE DISORDER
     Dosage: 15 MG ONCE DAILY ORAL
     Route: 048
     Dates: start: 20081215
  2. TRILAFON [Suspect]
     Indication: SCHIZOAFFECTIVE DISORDER
     Dosage: 4 MG 3 TIMES DAILY ORAL
     Route: 048
     Dates: start: 20081215

REACTIONS (2)
  - DEAFNESS TRANSITORY [None]
  - TRANSIENT ISCHAEMIC ATTACK [None]
